FAERS Safety Report 12669194 (Version 4)
Quarter: 2016Q4

REPORT INFORMATION
  Report Type: Spontaneous
  Country: JP (occurrence: JP)
  Receive Date: 20160819
  Receipt Date: 20161212
  Transmission Date: 20170207
  Serious: Yes (Death)
  Sender: FDA-Public Use
  Company Number: JP-JNJFOC-20160814484

PATIENT
  Age: 63 Year
  Sex: Male
  Weight: 60 kg

DRUGS (16)
  1. XEPLION [Suspect]
     Active Substance: PALIPERIDONE PALMITATE
     Indication: SCHIZOPHRENIA
     Route: 030
     Dates: start: 20140320, end: 20140423
  2. RISPERDAL CONSTA [Concomitant]
     Active Substance: RISPERIDONE
     Indication: SCHIZOPHRENIA
     Route: 030
     Dates: start: 20140424, end: 20150803
  3. HIRNAMIN [Concomitant]
     Active Substance: PHENOTHIAZINE
     Indication: SCHIZOPHRENIA
     Dosage: BEFORE SLEEPING
     Route: 048
     Dates: start: 1993, end: 20160629
  4. HIRNAMIN [Concomitant]
     Active Substance: PHENOTHIAZINE
     Indication: SCHIZOPHRENIA
     Dosage: BEFORE SLEEPING
     Route: 048
     Dates: start: 20160630, end: 20160815
  5. GASMOTIN [Concomitant]
     Active Substance: MOSAPRIDE CITRATE
     Indication: CONSTIPATION
     Dosage: AFTER EACH MEAL
     Route: 048
     Dates: start: 199904, end: 20160815
  6. XEPLION [Suspect]
     Active Substance: PALIPERIDONE PALMITATE
     Indication: SCHIZOPHRENIA
     Route: 030
     Dates: start: 20160229, end: 20160728
  7. MAGNESIUM OXIDE. [Concomitant]
     Active Substance: MAGNESIUM OXIDE
     Indication: CONSTIPATION
     Dosage: AFTER EACH MEAL
     Route: 048
     Dates: start: 199807, end: 20160815
  8. EURAX [Concomitant]
     Active Substance: CROTAMITON
     Indication: ERYTHEMA
     Route: 065
     Dates: start: 20160812
  9. BENZALIN [Concomitant]
     Active Substance: NITRAZEPAM
     Indication: INSOMNIA
     Dosage: BEFORE SLEEPING
     Route: 065
     Dates: start: 199712, end: 20160815
  10. RISPERDAL CONSTA [Concomitant]
     Active Substance: RISPERIDONE
     Indication: SCHIZOPHRENIA
     Route: 030
     Dates: start: 20101018, end: 20140319
  11. METLIGINE [Concomitant]
     Active Substance: MIDODRINE HYDROCHLORIDE
     Indication: HYPOTENSION
     Dosage: AFTER EACH MEAL
     Route: 048
     Dates: start: 200108, end: 20160815
  12. SENNOSIDE [Concomitant]
     Active Substance: SENNOSIDES
     Indication: CONSTIPATION
     Dosage: BEFORE SLEEPING
     Route: 048
     Dates: start: 199504, end: 20160815
  13. AKINETON [Concomitant]
     Active Substance: BIPERIDEN HYDROCHLORIDE
     Indication: PARKINSONISM
     Dosage: MORNING
     Route: 048
     Dates: start: 1993, end: 20160815
  14. MARZULENE-S [Concomitant]
     Active Substance: SODIUM GUALENATE
     Indication: GASTRITIS
     Dosage: AFTER EACH MEAL
     Route: 048
     Dates: start: 201104, end: 20160815
  15. ABILIFY [Concomitant]
     Active Substance: ARIPIPRAZOLE
     Indication: SCHIZOPHRENIA
     Route: 065
     Dates: start: 20150804, end: 20151208
  16. LENDORMIN [Concomitant]
     Active Substance: BROTIZOLAM
     Indication: INSOMNIA
     Dosage: BEFORE SLEEPING
     Route: 065
     Dates: start: 200001, end: 20160815

REACTIONS (2)
  - Sudden death [Fatal]
  - Erythema [Unknown]

NARRATIVE: CASE EVENT DATE: 20160812
